FAERS Safety Report 19447792 (Version 1)
Quarter: 2021Q2

REPORT INFORMATION
  Report Type: Spontaneous
  Country: US (occurrence: US)
  Receive Date: 20210621
  Receipt Date: 20210621
  Transmission Date: 20210717
  Serious: Yes (Hospitalization)
  Sender: FDA-Public Use
  Company Number: None

PATIENT
  Age: 59 Year
  Sex: Female

DRUGS (13)
  1. FUROSEMIDE. [Concomitant]
     Active Substance: FUROSEMIDE
  2. MIRALAX NF [Concomitant]
  3. FENTANYL DIS [Concomitant]
  4. AFINITOR [Suspect]
     Active Substance: EVEROLIMUS
     Indication: BREAST CANCER FEMALE
     Route: 048
     Dates: start: 20210526
  5. CALCIUM 600+D [Concomitant]
     Active Substance: CALCIUM\VITAMIN D
  6. DEXAMETHASON [Concomitant]
     Active Substance: DEXAMETHASONE
  7. PRIMIDONE. [Concomitant]
     Active Substance: PRIMIDONE
  8. CEPHALEXIN. [Concomitant]
     Active Substance: CEPHALEXIN
  9. ALEVE [Concomitant]
     Active Substance: NAPROXEN SODIUM
  10. GENERLAC [Concomitant]
     Active Substance: LACTULOSE
  11. HYDROCO/APAP [Concomitant]
     Active Substance: ACETAMINOPHEN\HYDROCODONE
  12. XGEVA [Concomitant]
     Active Substance: DENOSUMAB
  13. ANASTROZOLE. [Concomitant]
     Active Substance: ANASTROZOLE

REACTIONS (2)
  - Pain [None]
  - Pneumothorax [None]

NARRATIVE: CASE EVENT DATE: 20210521
